FAERS Safety Report 15660346 (Version 1)
Quarter: 2018Q4

REPORT INFORMATION
  Report Type: Spontaneous
  Country: US (occurrence: US)
  Receive Date: 20181115
  Receipt Date: 20181115
  Transmission Date: 20190205
  Serious: No
  Sender: FDA-Public Use
  Company Number: None

PATIENT

DRUGS (2)
  1. CRESTOR [Suspect]
     Active Substance: ROSUVASTATIN CALCIUM
  2. CRESTOR [Suspect]
     Active Substance: ROSUVASTATIN CALCIUM

REACTIONS (2)
  - Myalgia [None]
  - Treatment failure [None]
